FAERS Safety Report 6322565-5 (Version None)
Quarter: 2009Q3

REPORT INFORMATION
  Report Type: 
  Country: None (occurrence: None)
  Receive Date: 20090824
  Receipt Date: 20090225
  Transmission Date: 20100115
  Serious: No
  Sender: FDA-Public Use
  Company Number: US-ABBOTT-09P-163-0559719-00

PATIENT
  Sex: Female
  Weight: 75.818 kg

DRUGS (3)
  1. NIASPAN [Suspect]
     Indication: BLOOD CHOLESTEROL INCREASED
     Dates: start: 20090224, end: 20090224
  2. LOVOXYL [Concomitant]
     Indication: THYROID DISORDER
  3. CYTOMEL [Concomitant]
     Indication: THYROID DISORDER

REACTIONS (1)
  - HYPOAESTHESIA ORAL [None]
